FAERS Safety Report 6549071-7 (Version None)
Quarter: 2010Q1

REPORT INFORMATION
  Report Type: 
  Country: None (occurrence: None)
  Receive Date: 20100125
  Receipt Date: 20100115
  Transmission Date: 20100710
  Serious: Yes (Other)
  Sender: FDA-Public Use
  Company Number: GB-ROCHE-647104

PATIENT
  Age: 6 Month
  Sex: Male

DRUGS (3)
  1. TAMIFLU [Suspect]
     Route: 065
     Dates: start: 20090725, end: 20090726
  2. AUGMENTIN [Concomitant]
  3. DEXAMETHASONE [Concomitant]

REACTIONS (1)
  - HYPOGLYCAEMIA [None]
